FAERS Safety Report 17152317 (Version 6)
Quarter: 2020Q3

REPORT INFORMATION
  Report Type: Report from Study
  Country: CO (occurrence: CO)
  Receive Date: 20191213
  Receipt Date: 20200907
  Transmission Date: 20201102
  Serious: Yes (Other)
  Sender: FDA-Public Use
  Company Number: CO-BRISTOL-MYERS SQUIBB COMPANY-BMS-2019-098747

PATIENT
  Age: 58 Year
  Sex: Male

DRUGS (1)
  1. ABATACEPT [Suspect]
     Active Substance: ABATACEPT
     Indication: RHEUMATOID ARTHRITIS
     Dosage: 125 MILLIGRAM, QWK
     Route: 058
     Dates: start: 20160101

REACTIONS (20)
  - Pyrexia [Recovering/Resolving]
  - Motor dysfunction [Recovering/Resolving]
  - Visual impairment [Recovering/Resolving]
  - Mass [Recovering/Resolving]
  - Balance disorder [Unknown]
  - Tooth disorder [Recovering/Resolving]
  - Inflammation [Recovering/Resolving]
  - Urinary tract infection [Recovering/Resolving]
  - Arthralgia [Recovering/Resolving]
  - Post procedural haemorrhage [Unknown]
  - Fall [Recovering/Resolving]
  - Haematoma [Recovering/Resolving]
  - Cerebrovascular accident [Recovering/Resolving]
  - Head injury [Recovering/Resolving]
  - Epistaxis [Recovering/Resolving]
  - Influenza [Recovering/Resolving]
  - Amnesia [Unknown]
  - Back pain [Recovering/Resolving]
  - Bone pain [Recovering/Resolving]
  - Platelet count decreased [Recovering/Resolving]

NARRATIVE: CASE EVENT DATE: 20191007
